FAERS Safety Report 6469154-X (Version None)
Quarter: 2009Q4

REPORT INFORMATION
  Report Type: 
  Country: None (occurrence: None)
  Receive Date: 20091203
  Receipt Date: 20090624
  Transmission Date: 20100525
  Serious: Yes (Disabling)
  Sender: FDA-Public Use
  Company Number: GB-ELI_LILLY_AND_COMPANY-GB200704001096

PATIENT
  Age: 71 Year
  Sex: Female
  Weight: 63 kg

DRUGS (5)
  1. FLUOXETINE [Suspect]
     Indication: PANIC ATTACK
     Dosage: 20 MG, DAILY (1/D)
     Route: 048
     Dates: start: 20060721, end: 20060801
  2. ATARAX [Concomitant]
     Dosage: 10 MG, DAILY (1/D)
     Route: 048
  3. LEVOTHYROXINE SODIUM [Concomitant]
     Route: 048
  4. LIPITOR [Concomitant]
     Dosage: 20 MG, DAILY (1/D)
     Route: 048
  5. SERTRALINE HYDROCHLORIDE [Concomitant]
     Indication: ANXIETY
     Dosage: 50 MG, DAILY (1/D)
     Route: 048
     Dates: start: 20060101, end: 20060720

REACTIONS (4)
  - DYSPNOEA [None]
  - GLOSSITIS [None]
  - LUNG DISORDER [None]
  - SWOLLEN TONGUE [None]
